FAERS Safety Report 21279803 (Version 1)
Quarter: 2022Q3

REPORT INFORMATION
  Report Type: Spontaneous
  Country: US (occurrence: None)
  Receive Date: 20220831
  Receipt Date: 20220831
  Transmission Date: 20221027
  Serious: Yes (Hospitalization)
  Sender: FDA-Public Use
  Company Number: None

PATIENT
  Sex: Male
  Weight: 75.3 kg

DRUGS (2)
  1. GEMCITABINE HYDROCHLORIDE [Suspect]
     Active Substance: GEMCITABINE HYDROCHLORIDE
  2. PACLITAXEL [Concomitant]
     Active Substance: PACLITAXEL

REACTIONS (11)
  - Gastrointestinal haemorrhage [None]
  - Chronic gastritis [None]
  - Oesophageal ulcer [None]
  - Peripheral swelling [None]
  - Asthenia [None]
  - Fall [None]
  - Peripheral arterial occlusive disease [None]
  - Pulse absent [None]
  - Limb injury [None]
  - Generalised oedema [None]
  - Failure to thrive [None]

NARRATIVE: CASE EVENT DATE: 20220811
